FAERS Safety Report 5851455-7 (Version None)
Quarter: 2008Q3

REPORT INFORMATION
  Report Type: 
  Country: None (occurrence: None)
  Receive Date: 20080731
  Receipt Date: 20080609
  Transmission Date: 20090109
  Serious: No
  Sender: FDA-Public Use
  Company Number: US200706004657

PATIENT
  Age: 70 Year
  Sex: Female
  Weight: 102 kg

DRUGS (6)
  1. BYETTA [Suspect]
     Dosage: 5 UG, 2/D, SUBCUTANEOUS ; 10 UG, 2/D, SUBCUTANEOUS ; 20 UG, OTHER, SUBCUTANEOUS ; 10 UG, 2/D
     Route: 058
     Dates: start: 20060101, end: 20060101
  2. BYETTA [Suspect]
     Dosage: 5 UG, 2/D, SUBCUTANEOUS ; 10 UG, 2/D, SUBCUTANEOUS ; 20 UG, OTHER, SUBCUTANEOUS ; 10 UG, 2/D
     Route: 058
     Dates: start: 20060101
  3. BYETTA [Suspect]
     Dosage: 5 UG, 2/D, SUBCUTANEOUS ; 10 UG, 2/D, SUBCUTANEOUS ; 20 UG, OTHER, SUBCUTANEOUS ; 10 UG, 2/D
     Route: 058
     Dates: start: 20070611
  4. BYETTA [Suspect]
  5. LANTUS [Concomitant]
  6. PLAVIX [Concomitant]

REACTIONS (10)
  - ACCIDENTAL OVERDOSE [None]
  - BLOOD GLUCOSE INCREASED [None]
  - BURSITIS [None]
  - ERUCTATION [None]
  - FREQUENT BOWEL MOVEMENTS [None]
  - INCORRECT DOSE ADMINISTERED [None]
  - INJECTION SITE HAEMORRHAGE [None]
  - NAUSEA [None]
  - RHINORRHOEA [None]
  - WEIGHT DECREASED [None]
